FAERS Safety Report 4305386-4 (Version None)
Quarter: 2004Q1

REPORT INFORMATION
  Report Type: 
  Country: None (occurrence: None)
  Receive Date: 20040226
  Receipt Date: 20030923
  Transmission Date: 20041129
  Serious: Yes (Other)
  Sender: FDA-Public Use
  Company Number: US-BRISTOL-MYERS SQUIBB COMPANY-12392973

PATIENT
  Sex: Female

DRUGS (3)
  1. TAXOL [Suspect]
  2. PARAPLATIN [Suspect]
  3. GEMCITABINE [Suspect]

REACTIONS (1)
  - DEAFNESS [None]
